FAERS Safety Report 5157471-5 (Version None)
Quarter: 2006Q4

REPORT INFORMATION
  Report Type: 
  Country: None (occurrence: None)
  Receive Date: 20061127
  Receipt Date: 20050329
  Transmission Date: 20070319
  Serious: Yes (Other)
  Sender: FDA-Public Use
  Company Number: US-GLAXOSMITHKLINE-A0552404A

PATIENT
  Age: 18 Year
  Sex: Female

DRUGS (1)
  1. PAXIL [Suspect]
     Indication: DRUG USE FOR UNKNOWN INDICATION
     Dosage: 20MG PER DAY
     Route: 048

REACTIONS (5)
  - AGGRESSION [None]
  - DEPRESSION [None]
  - INSOMNIA [None]
  - SELF MUTILATION [None]
  - SUICIDAL IDEATION [None]
